FAERS Safety Report 6382756-4 (Version None)
Quarter: 2009Q3

REPORT INFORMATION
  Report Type: 
  Country: None (occurrence: None)
  Receive Date: 20090930
  Receipt Date: 20090921
  Transmission Date: 20100115
  Serious: Yes (Other)
  Sender: FDA-Public Use
  Company Number: US-ASTRAZENECA-2009UW02139

PATIENT
  Age: 18595 Day
  Sex: Male
  Weight: 83.9 kg

DRUGS (11)
  1. SEROQUEL [Suspect]
     Indication: BIPOLAR DISORDER
     Route: 048
     Dates: start: 20030101
  2. SEROQUEL [Suspect]
     Route: 048
     Dates: start: 20030101
  3. SEROQUEL [Suspect]
     Dosage: REDUCED DOSE OF SEROQUEL BY 75MG QD
     Route: 048
     Dates: start: 20090101
  4. SEROQUEL [Suspect]
     Route: 048
     Dates: start: 20090306
  5. CLONOPIN [Concomitant]
     Indication: ANXIETY
     Route: 048
  6. RESTORIL [Concomitant]
     Indication: SLEEP DISORDER
     Dosage: PRN
  7. COLACE [Concomitant]
     Indication: ABNORMAL FAECES
  8. TOPAMAX [Concomitant]
     Indication: APPETITE DISORDER
  9. TOPAMAX [Concomitant]
     Indication: AFFECTIVE DISORDER
  10. NIASPAN [Concomitant]
  11. MULTI-VITAMIN [Concomitant]

REACTIONS (2)
  - GRANULOCYTOSIS [None]
  - NEUTROPENIA [None]
